FAERS Safety Report 7605823-3 (Version None)
Quarter: 2011Q3

REPORT INFORMATION
  Report Type: 
  Country: None (occurrence: None)
  Receive Date: 20110713
  Receipt Date: 20110705
  Transmission Date: 20111222
  Serious: Yes (Death)
  Sender: FDA-Public Use
  Company Number: US-BAYER-201039164GPV

PATIENT
  Age: 65 Year
  Sex: Male
  Weight: 115 kg

DRUGS (11)
  1. SORAFENIB [Suspect]
     Indication: RENAL CELL CARCINOMA
     Route: 048
     Dates: start: 20100727, end: 20100906
  2. NYSTATIN [Concomitant]
     Indication: CANDIDIASIS
     Dosage: UNK
  3. TACLONEX [Concomitant]
     Indication: PSORIASIS
     Dosage: UNK
  4. CLOBETASOL PROPIONATE [Concomitant]
     Indication: PSORIASIS
     Dosage: UNK
  5. OPHTHALMOLOGICALS [Concomitant]
     Indication: EYE DISORDER
  6. NORVASC [Concomitant]
     Indication: HYPERTENSION
     Dosage: UNK
  7. JANUVIA [Concomitant]
     Indication: DIABETES MELLITUS
     Dosage: UNK
  8. SYNTHROID [Concomitant]
     Indication: HYPOTHYROIDISM
     Dosage: UNK
  9. HYDROCORTISONE [Concomitant]
     Indication: PSORIASIS
     Dosage: UNK
  10. BENAZEPRIL HYDROCHLORIDE [Concomitant]
     Indication: HYPERTENSION
     Dosage: UNK
  11. IMODIUM [Concomitant]
     Indication: DIARRHOEA
     Dosage: UNK

REACTIONS (1)
  - CARDIO-RESPIRATORY ARREST [None]
